FAERS Safety Report 5732345-7 (Version None)
Quarter: 2008Q2

REPORT INFORMATION
  Report Type: 
  Country: None (occurrence: None)
  Receive Date: 20080508
  Receipt Date: 20080414
  Transmission Date: 20081010
  Serious: No
  Sender: FDA-Public Use
  Company Number: US-BOEHRINGER INGELHEIM GMBH, GERMANY-2008-BP-05818BP

PATIENT
  Sex: Male

DRUGS (3)
  1. FLOMAX [Suspect]
     Indication: PROSTATOMEGALY
     Route: 048
     Dates: start: 20080411
  2. ACEBUTOLOL [Concomitant]
     Indication: HYPERTENSION
  3. CARTIA XT [Concomitant]
     Indication: HYPERTENSION

REACTIONS (1)
  - EJACULATION FAILURE [None]
